FAERS Safety Report 12330747 (Version 1)
Quarter: 2016Q2

REPORT INFORMATION
  Report Type: Spontaneous
  Country: US (occurrence: US)
  Receive Date: 20160504
  Receipt Date: 20160504
  Transmission Date: 20160815
  Serious: No
  Sender: FDA-Public Use
  Company Number: US-BAYER-2016-080075

PATIENT
  Sex: Male

DRUGS (1)
  1. MIDOL EXTENDED RELIEF [Suspect]
     Active Substance: NAPROXEN SODIUM
     Indication: JOINT SWELLING
     Dosage: UNK, BEFORE MEALS
     Route: 048

REACTIONS (1)
  - Product use issue [None]
